FAERS Safety Report 4555287-1 (Version None)
Quarter: 2005Q1

REPORT INFORMATION
  Report Type: 
  Country: None (occurrence: None)
  Receive Date: 20050118
  Receipt Date: 20041201
  Transmission Date: 20050727
  Serious: Yes (Hospitalization)
  Sender: FDA-Public Use
  Company Number: ESWYE254202DEC04

PATIENT
  Sex: Female
  Weight: 74.2 kg

DRUGS (15)
  1. ETANERCEPT - BLINDED [Suspect]
     Indication: TEMPORAL ARTERITIS
     Route: 058
     Dates: start: 20040514, end: 20041130
  2. METHOTREXATE [Concomitant]
     Route: 048
     Dates: start: 20030210
  3. ACETYLSALICYLIC ACID SRT [Concomitant]
     Route: 048
  4. DIGOXIN [Concomitant]
     Route: 048
  5. FOLIC ACID [Concomitant]
     Route: 048
     Dates: start: 20030210
  6. OMEPRAZOLE [Concomitant]
     Route: 048
  7. OS-CAL [Concomitant]
     Route: 048
     Dates: start: 20040203
  8. SELEGILINE HCL [Concomitant]
     Route: 048
  9. ZOLPIDEM TARTRATE [Concomitant]
     Route: 048
     Dates: start: 20040921
  10. VALSARTAN [Concomitant]
     Route: 048
  11. INSULIN [Concomitant]
     Route: 058
  12. METOCLOPRAMIDE [Concomitant]
     Dosage: UNSPECIFIED
     Route: 048
  13. CARBIDOPA [Concomitant]
     Dosage: 300/75 MG
     Route: 048
  14. TORSEMIDE [Concomitant]
     Route: 048
  15. ALMAGATE [Concomitant]
     Dates: start: 20041210

REACTIONS (4)
  - GASTRITIS [None]
  - HAEMATOCHEZIA [None]
  - THERAPEUTIC AGENT TOXICITY [None]
  - WEIGHT DECREASED [None]
